FAERS Safety Report 17301302 (Version 1)
Quarter: 2020Q1

REPORT INFORMATION
  Report Type: Spontaneous
  Country: US (occurrence: US)
  Receive Date: 20200121
  Receipt Date: 20200121
  Transmission Date: 20200409
  Serious: Yes (Death)
  Sender: FDA-Public Use
  Company Number: None

PATIENT
  Age: 38 Year
  Sex: Male
  Weight: 65.7 kg

DRUGS (2)
  1. CBD GUMMIES FROM HEMP 300 MG [Concomitant]
     Active Substance: CANNABIDIOL\HERBALS
  2. KRATOM [Suspect]
     Active Substance: HERBALS\MITRAGYNINE

REACTIONS (1)
  - Death [None]

NARRATIVE: CASE EVENT DATE: 20191224
